FAERS Safety Report 15951370 (Version 1)
Quarter: 2019Q1

REPORT INFORMATION
  Report Type: Report from Study
  Country: US (occurrence: US)
  Receive Date: 20190212
  Receipt Date: 20190212
  Transmission Date: 20190417
  Serious: Yes (Other)
  Sender: FDA-Public Use
  Company Number: US-TEVA-2019-US-1009106

PATIENT

DRUGS (4)
  1. TRETINOIN. [Suspect]
     Active Substance: TRETINOIN
     Indication: ACUTE MYELOID LEUKAEMIA
     Dosage: 45 MG/M2 DAILY;
     Route: 048
  2. DASATINIB (BRISTOL MYERS SQUIBB) [Suspect]
     Active Substance: DASATINIB
     Indication: ACUTE MYELOID LEUKAEMIA
     Dosage: 70 MILLIGRAM DAILY; DOSE LEVEL 1
     Route: 048
  3. DASATINIB (BRISTOL MYERS SQUIBB) [Suspect]
     Active Substance: DASATINIB
     Dosage: 100 MILLIGRAM DAILY; DOSE LEVEL 1
     Route: 048
  4. DASATINIB (BRISTOL MYERS SQUIBB) [Suspect]
     Active Substance: DASATINIB
     Dosage: 140 MILLIGRAM DAILY; DOSE LEVEL 1
     Route: 048

REACTIONS (5)
  - Toxicity to various agents [None]
  - Pathogen resistance [None]
  - Electrocardiogram QT prolonged [Unknown]
  - Diarrhoea [None]
  - Enterococcal sepsis [None]
